FAERS Safety Report 8622472-9 (Version None)
Quarter: 2012Q3

REPORT INFORMATION
  Report Type: 
  Country: None (occurrence: None)
  Receive Date: 20120827
  Receipt Date: 20120821
  Transmission Date: 20120928
  Serious: Yes (Other)
  Sender: FDA-Public Use
  Company Number: JP-009507513-1208JPN009700

PATIENT

DRUGS (8)
  1. TELAVIC [Suspect]
     Indication: HEPATITIS C
     Dosage: 1500 MG, UNK
     Route: 048
     Dates: start: 20120507, end: 20120708
  2. REBETOL [Suspect]
     Dosage: 200 MG, UNK
     Route: 048
     Dates: start: 20120625, end: 20120730
  3. LOXONIN [Concomitant]
     Indication: PYREXIA
     Dosage: UNK
     Route: 048
     Dates: start: 20120507
  4. PEG-INTRON [Suspect]
     Indication: HEPATITIS C
     Dosage: 1.5 MICROGRAM PER KILOGRAM, QW
     Route: 058
     Dates: start: 20120507
  5. REBETOL [Suspect]
     Indication: HEPATITIS C
     Dosage: 400 MG, UNK
     Route: 048
     Dates: start: 20120507, end: 20120624
  6. OLOPATADINE HCL [Concomitant]
     Indication: OEDEMA PERIPHERAL
     Dosage: 10 MG, UNK
     Route: 048
     Dates: start: 20120509, end: 20120730
  7. ALLOPURINOL [Concomitant]
     Indication: HYPERURICAEMIA
     Dosage: 200 MG, UNK
     Route: 048
     Dates: start: 20120510, end: 20120730
  8. BETAMETHASONE SODIUM PHOSPHATE [Concomitant]
     Indication: RASH
     Dosage: UNK
     Route: 061
     Dates: start: 20120625

REACTIONS (1)
  - RASH [None]
